FAERS Safety Report 21530503 (Version 2)
Quarter: 2022Q4

REPORT INFORMATION
  Report Type: Report from Study
  Country: PL (occurrence: PL)
  Receive Date: 20221031
  Receipt Date: 20221118
  Transmission Date: 20230112
  Serious: Yes (Other)
  Sender: FDA-Public Use
  Company Number: PL-Merck Healthcare KGaA-9344207

PATIENT
  Age: 55 Year
  Sex: Male

DRUGS (38)
  1. IRINOTECAN HYDROCHLORIDE [Suspect]
     Active Substance: IRINOTECAN HYDROCHLORIDE
     Indication: Colorectal cancer metastatic
     Dosage: 331 MG/M2
     Dates: start: 20200414
  2. IRINOTECAN HYDROCHLORIDE [Suspect]
     Active Substance: IRINOTECAN HYDROCHLORIDE
     Dosage: 333 MG/M2
     Dates: start: 20200527
  3. IRINOTECAN HYDROCHLORIDE [Suspect]
     Active Substance: IRINOTECAN HYDROCHLORIDE
     Dosage: 334 MG/M2
     Dates: start: 20200429
  4. IRINOTECAN HYDROCHLORIDE [Suspect]
     Active Substance: IRINOTECAN HYDROCHLORIDE
     Dosage: 180 MG/M2
     Dates: start: 20200624
  5. IRINOTECAN HYDROCHLORIDE [Suspect]
     Active Substance: IRINOTECAN HYDROCHLORIDE
     Dosage: 336 MG/M2
     Dates: start: 20200302
  6. FLUOROURACIL [Suspect]
     Active Substance: FLUOROURACIL
     Indication: Colorectal cancer metastatic
     Dosage: 2000 MG/M2
     Dates: start: 20200610
  7. FLUOROURACIL [Suspect]
     Active Substance: FLUOROURACIL
     Dosage: 3680 MG/M2
     Dates: start: 20200414
  8. FLUOROURACIL [Suspect]
     Active Substance: FLUOROURACIL
     Dosage: 3700 MG/M2
     Dates: start: 20200527
  9. FLUOROURACIL [Suspect]
     Active Substance: FLUOROURACIL
     Dosage: 3720 MG/M2
     Dates: start: 20200429
  10. FLUOROURACIL [Suspect]
     Active Substance: FLUOROURACIL
     Dosage: 1000 MG/M2
     Dates: start: 20200916
  11. FLUOROURACIL [Suspect]
     Active Substance: FLUOROURACIL
     Dosage: 3740 MG/M2
     Dates: start: 20200302
  12. LEUCOVORIN [Suspect]
     Active Substance: LEUCOVORIN
     Indication: Colorectal cancer metastatic
     Dosage: 368 MG/M2
     Dates: start: 20200414
  13. LEUCOVORIN [Suspect]
     Active Substance: LEUCOVORIN
     Dosage: 200 MG/M2
     Dates: start: 20200610
  14. LEUCOVORIN [Suspect]
     Active Substance: LEUCOVORIN
     Dosage: 372 MG/M2
     Dates: start: 20200429
  15. LEUCOVORIN [Suspect]
     Active Substance: LEUCOVORIN
     Dosage: 374 MG/M2
     Dates: start: 20200302
  16. LEUCOVORIN [Suspect]
     Active Substance: LEUCOVORIN
     Dosage: 100 MG/M2
     Dates: start: 20200916
  17. LEUCOVORIN [Suspect]
     Active Substance: LEUCOVORIN
     Dosage: 370 MG/M2
     Dates: start: 20200527
  18. CETUXIMAB [Suspect]
     Active Substance: CETUXIMAB
     Indication: Colorectal cancer metastatic
     Dosage: 920 MG/M2
     Dates: start: 20200414
  19. CETUXIMAB [Suspect]
     Active Substance: CETUXIMAB
     Dosage: 930 MG/M2
     Dates: start: 20200429
  20. CETUXIMAB [Suspect]
     Active Substance: CETUXIMAB
     Dosage: 935 MG/M2
     Dates: start: 20200302
  21. CETUXIMAB [Suspect]
     Active Substance: CETUXIMAB
     Dosage: 925 MG/M2
     Dates: start: 20200527
  22. CETUXIMAB [Suspect]
     Active Substance: CETUXIMAB
     Dosage: 500 MG/M2
     Dates: start: 20200610, end: 20200916
  23. METOCLOPRAMIDUM [METOCLOPRAMIDE] [Concomitant]
     Indication: Product used for unknown indication
     Dosage: UNK
     Dates: start: 20200304
  24. DOXYCYCLINUM [DOXYCYCLINE] [Concomitant]
     Indication: Product used for unknown indication
     Dosage: UNK
     Dates: start: 20200513
  25. ROZEX [METRONIDAZOLE] [Concomitant]
     Indication: Product used for unknown indication
     Dosage: UNK
     Dates: start: 20200724
  26. FILGRASTIM [Concomitant]
     Active Substance: FILGRASTIM
     Indication: Product used for unknown indication
     Dosage: UNK
     Dates: start: 20200415
  27. BUPRENORPHINE [Concomitant]
     Active Substance: BUPRENORPHINE
     Indication: Product used for unknown indication
     Dosage: UNK
     Dates: start: 20200515
  28. AMOXICILLIN [Concomitant]
     Active Substance: AMOXICILLIN
     Indication: Product used for unknown indication
     Dosage: UNK
     Dates: start: 20200330
  29. ADATAM [Concomitant]
     Indication: Product used for unknown indication
     Dosage: 1*1
     Dates: start: 20200807
  30. PEGFILGRASTIM [Concomitant]
     Active Substance: PEGFILGRASTIM
     Indication: Product used for unknown indication
     Dosage: UNK
     Dates: start: 20200527
  31. ACETAMINOPHEN\TRAMADOL HYDROCHLORIDE [Concomitant]
     Active Substance: ACETAMINOPHEN\TRAMADOL HYDROCHLORIDE
     Indication: Product used for unknown indication
     Dosage: UNK
     Dates: start: 20200304
  32. FURAZIDINE [Concomitant]
     Active Substance: FURAZIDINE
     Indication: Product used for unknown indication
     Dosage: 2 TABLETS
     Route: 048
     Dates: start: 20200807
  33. ENOXAPARIN SODIUM [Concomitant]
     Active Substance: ENOXAPARIN SODIUM
     Indication: Embolism venous
     Dosage: UNK
     Dates: start: 20200304
  34. UNIDOX [DOXYCYCLINE] [Concomitant]
     Indication: Product used for unknown indication
     Dosage: UNK
     Dates: start: 20200515
  35. SCOPOLAN [Concomitant]
     Indication: Product used for unknown indication
     Dosage: 3*1
     Dates: start: 20200805
  36. GRANULOCYTE COLONY-STIMULATING FACTOR NOS [Concomitant]
     Active Substance: GRANULOCYTE COLONY-STIMULATING FACTOR NOS
     Indication: Product used for unknown indication
     Dosage: UNK
     Dates: start: 20200708
  37. FILGRASTIM [Concomitant]
     Active Substance: FILGRASTIM
     Indication: Product used for unknown indication
     Dosage: UNK
     Dates: start: 20200610
  38. CIPRONEX [CIPROFLOXACIN] [Concomitant]
     Indication: Product used for unknown indication
     Dosage: UNK
     Dates: start: 20200330

REACTIONS (3)
  - Hydronephrosis [Recovered/Resolved]
  - Renal failure [Recovered/Resolved]
  - Off label use [Unknown]

NARRATIVE: CASE EVENT DATE: 20200930
